FAERS Safety Report 17813642 (Version 1)
Quarter: 2020Q2

REPORT INFORMATION
  Report Type: Spontaneous
  Country: US (occurrence: US)
  Receive Date: 20200521
  Receipt Date: 20200521
  Transmission Date: 20200714
  Serious: No
  Sender: FDA-Public Use
  Company Number: US-BRECKENRIDGE PHARMACEUTICAL, INC.-2084070

PATIENT
  Age: 55 Year
  Sex: Female
  Weight: 61.36 kg

DRUGS (3)
  1. ALPRAZOLAM. [Suspect]
     Active Substance: ALPRAZOLAM
     Indication: SLEEP DISORDER
     Route: 048
  2. MULTIVITAMIN TABLETS [Concomitant]
  3. LIALDA [Concomitant]
     Active Substance: MESALAMINE

REACTIONS (1)
  - Poor quality sleep [None]
